FAERS Safety Report 8199110-5 (Version None)
Quarter: 2012Q1

REPORT INFORMATION
  Report Type: 
  Country: None (occurrence: None)
  Receive Date: 20120309
  Receipt Date: 20120306
  Transmission Date: 20120608
  Serious: Yes (Other)
  Sender: FDA-Public Use
  Company Number: US-ROCHE-1046176

PATIENT

DRUGS (6)
  1. BONIVA [Suspect]
     Indication: OSTEITIS DEFORMANS
  2. FOSAMAX [Suspect]
     Indication: OSTEOPENIA
  3. BONIVA [Suspect]
     Indication: OSTEOPENIA
  4. FOSAMAX [Suspect]
     Indication: OSTEITIS DEFORMANS
  5. BONIVA [Suspect]
     Indication: OSTEOPOROSIS
     Dates: start: 20070101, end: 20080701
  6. FOSAMAX [Suspect]
     Indication: OSTEOPOROSIS
     Dates: start: 20031101, end: 20070101

REACTIONS (3)
  - LOW TURNOVER OSTEOPATHY [None]
  - ANXIETY [None]
  - FEMUR FRACTURE [None]
